FAERS Safety Report 14438951 (Version 8)
Quarter: 2019Q1

REPORT INFORMATION
  Report Type: Spontaneous
  Country: JP (occurrence: JP)
  Receive Date: 20180125
  Receipt Date: 20190304
  Transmission Date: 20190417
  Serious: Yes (Hospitalization, Other)
  Sender: FDA-Public Use
  Company Number: JP-009507513-1510JPN010121

PATIENT
  Age: 66 Year
  Sex: Male
  Weight: 76 kg

DRUGS (10)
  1. PEGINTRON [Suspect]
     Active Substance: PEGINTERFERON ALFA-2B
     Indication: MALIGNANT MELANOMA
     Dosage: 6 MICROGRAM PER KILOGRAM, QW
     Route: 058
     Dates: start: 20150730, end: 20150819
  2. LULICON:CREAM [Concomitant]
     Indication: TINEA INFECTION
     Dosage: 2 G, UNK
     Route: 061
     Dates: start: 20160506, end: 20160712
  3. ACTOSIN [Concomitant]
     Indication: SKIN ULCER
     Dosage: 3 G, UNK
     Route: 061
     Dates: start: 20160512, end: 20160712
  4. MUCOSTA [Concomitant]
     Active Substance: REBAMIPIDE
     Indication: PYREXIA
     Dosage: 100 MG, PRN
     Route: 048
     Dates: start: 20150806
  5. PEGINTRON [Suspect]
     Active Substance: PEGINTERFERON ALFA-2B
     Dosage: 3 MICROGRAM PER KILOGRAM, QOW
     Route: 058
     Dates: start: 20160725, end: 20170104
  6. WARFARIN [Concomitant]
     Active Substance: WARFARIN
     Indication: DEEP VEIN THROMBOSIS
     Dosage: 0.5 MILLIGRAM, UNKNOWN
     Route: 048
  7. PEGINTRON [Suspect]
     Active Substance: PEGINTERFERON ALFA-2B
     Dosage: 3 MICROGRAM PER KILOGRAM, QW
     Route: 058
     Dates: start: 20150820, end: 20151028
  8. PEGINTRON [Suspect]
     Active Substance: PEGINTERFERON ALFA-2B
     Dosage: 3 MICROGRAM PER KILOGRAM, Q3W
     Route: 058
     Dates: start: 20170105, end: 20170105
  9. PEGINTRON [Suspect]
     Active Substance: PEGINTERFERON ALFA-2B
     Dosage: 3 MICROGRAM PER KILOGRAM, QOW
     Route: 058
     Dates: start: 20151224, end: 20160413
  10. LOXONIN [Concomitant]
     Active Substance: LOXOPROFEN SODIUM
     Indication: PYREXIA
     Dosage: 60 MG, PRN
     Route: 048
     Dates: start: 20150806

REACTIONS (22)
  - Pyrexia [Recovered/Resolved]
  - Platelet count decreased [Recovered/Resolved]
  - Alanine aminotransferase increased [Recovered/Resolved]
  - Anaemia [Recovered/Resolved]
  - Rash [Recovering/Resolving]
  - Xeroderma [Recovered/Resolved]
  - Skin ulcer [Recovered/Resolved]
  - Gamma-glutamyltransferase increased [Recovered/Resolved]
  - Malignant neoplasm progression [Recovering/Resolving]
  - Aspartate aminotransferase increased [Recovered/Resolved]
  - Gamma-glutamyltransferase increased [Recovered/Resolved]
  - C-reactive protein increased [Recovered/Resolved]
  - Platelet count increased [Recovered/Resolved]
  - Rash [Not Recovered/Not Resolved]
  - White blood cell count decreased [Recovered/Resolved]
  - Cellulitis [Recovered/Resolved]
  - White blood cell count decreased [Recovered/Resolved]
  - Anaemia [Not Recovered/Not Resolved]
  - Platelet count decreased [Not Recovered/Not Resolved]
  - Injection site erythema [Recovered/Resolved]
  - C-reactive protein increased [Recovered/Resolved]
  - Gamma-glutamyltransferase increased [Recovered/Resolved]

NARRATIVE: CASE EVENT DATE: 20150730
